FAERS Safety Report 7777451-0 (Version None)
Quarter: 2011Q3

REPORT INFORMATION
  Report Type: 
  Country: None (occurrence: None)
  Receive Date: 20110926
  Receipt Date: 20110916
  Transmission Date: 20111222
  Serious: Yes (Hospitalization)
  Sender: FDA-Public Use
  Company Number: FR-JNJFOC-20110709779

PATIENT
  Sex: Male
  Weight: 60 kg

DRUGS (22)
  1. LEXOMIL [Concomitant]
     Indication: ANXIETY
     Dosage: A FOURTH TABLET ON THE MORNING
     Route: 048
     Dates: start: 20110617, end: 20110617
  2. ABIRATERONE ACETATE [Suspect]
     Indication: PROSTATE CANCER
     Route: 048
     Dates: start: 20110523
  3. ACTISKENAN [Concomitant]
     Indication: PAIN
     Route: 048
     Dates: start: 20110401
  4. BICARBONATE [Concomitant]
     Indication: PRODUCT USED FOR UNKNOWN INDICATION
     Route: 048
  5. LASIX [Concomitant]
     Indication: PRODUCT USED FOR UNKNOWN INDICATION
     Route: 048
  6. PAROXETINE HCL [Concomitant]
     Route: 048
     Dates: start: 20110615, end: 20110622
  7. MEGACE [Concomitant]
     Indication: PRODUCT USED FOR UNKNOWN INDICATION
     Route: 048
  8. PREDNISOLONE [Suspect]
     Route: 048
     Dates: start: 20110623, end: 20110718
  9. MORPHINE SULFATE [Concomitant]
     Indication: PAIN
     Route: 048
     Dates: start: 20110615
  10. LOVENOX [Concomitant]
     Indication: PRODUCT USED FOR UNKNOWN INDICATION
     Route: 058
     Dates: start: 20110622
  11. ABIRATERONE ACETATE [Suspect]
     Route: 048
  12. PREDNISONE [Suspect]
     Indication: PROSTATE CANCER
     Route: 048
  13. PREDNISOLONE [Suspect]
     Route: 048
  14. FORLAX [Concomitant]
     Indication: CONSTIPATION
     Route: 048
     Dates: start: 20110616
  15. PREDNISOLONE [Suspect]
     Route: 048
  16. ACETAMINOPHEN [Concomitant]
     Indication: PRODUCT USED FOR UNKNOWN INDICATION
     Route: 048
  17. PAROXETINE HCL [Concomitant]
     Indication: ANXIETY
     Route: 048
  18. OMEPRAZOLE [Concomitant]
     Indication: GASTROOESOPHAGEAL REFLUX DISEASE
     Route: 048
     Dates: start: 20110622
  19. ACETAMINOPHEN [Concomitant]
     Indication: PAIN
     Route: 042
     Dates: start: 20110615, end: 20110619
  20. PREDNISOLONE [Suspect]
     Indication: PROSTATE CANCER
     Route: 048
     Dates: start: 20110614, end: 20110615
  21. MORPHINE SULFATE [Concomitant]
     Route: 048
     Dates: start: 20110201, end: 20110615
  22. SOLU-MEDROL [Concomitant]
     Indication: PROSTATE CANCER
     Route: 042
     Dates: start: 20110615, end: 20110622

REACTIONS (7)
  - BACK PAIN [None]
  - GENERAL PHYSICAL HEALTH DETERIORATION [None]
  - PAIN IN EXTREMITY [None]
  - MUSCULAR WEAKNESS [None]
  - DECREASED APPETITE [None]
  - RENAL FAILURE ACUTE [None]
  - ASTHENIA [None]
